FAERS Safety Report 5894563-7 (Version None)
Quarter: 2008Q3

REPORT INFORMATION
  Report Type: 
  Country: None (occurrence: None)
  Receive Date: 20080924
  Receipt Date: 20071126
  Transmission Date: 20090109
  Serious: No
  Sender: FDA-Public Use
  Company Number: US-BAYER-US-2007-039787

PATIENT
  Age: 41 Year
  Sex: Female

DRUGS (5)
  1. BETASERON [Suspect]
     Indication: RELAPSING-REMITTING MULTIPLE SCLEROSIS
     Route: 058
     Dates: start: 19950101, end: 20070924
  2. NEURONTIN [Concomitant]
     Dosage: UNIT DOSE: 600 MG
     Route: 048
  3. PROVIGIL [Concomitant]
     Dosage: UNIT DOSE: 200 MG
  4. OXYCONTIN [Concomitant]
  5. BONIVA [Concomitant]
     Dosage: UNIT DOSE: 150 MG
     Route: 048

REACTIONS (1)
  - NO ADVERSE EVENT [None]
